FAERS Safety Report 13391569 (Version 1)
Quarter: 2017Q1

REPORT INFORMATION
  Report Type: Spontaneous
  Country: US (occurrence: US)
  Receive Date: 20170331
  Receipt Date: 20170331
  Transmission Date: 20170429
  Serious: Yes (Life-Threatening, Other)
  Sender: FDA-Public Use
  Company Number: None

PATIENT
  Age: 46 Year
  Sex: Female
  Weight: 80.3 kg

DRUGS (1)
  1. EMEND [Suspect]
     Active Substance: APREPITANT
     Dosage: ?          OTHER FREQUENCY:ONCE;?

REACTIONS (3)
  - Tremor [None]
  - Palpitations [None]
  - Dyspnoea [None]

NARRATIVE: CASE EVENT DATE: 20160914
